FAERS Safety Report 17643076 (Version 1)
Quarter: 2020Q2

REPORT INFORMATION
  Report Type: Spontaneous
  Country: US (occurrence: US)
  Receive Date: 20200407
  Receipt Date: 20200407
  Transmission Date: 20200713
  Serious: Yes (Hospitalization)
  Sender: FDA-Public Use
  Company Number: None

PATIENT
  Age: 79 Year
  Sex: Female

DRUGS (23)
  1. OLMESA MEDOX [Concomitant]
  2. OMEPRAZOLE. [Concomitant]
     Active Substance: OMEPRAZOLE
  3. PLAVIX [Concomitant]
     Active Substance: CLOPIDOGREL BISULFATE
  4. PREDNISONE. [Concomitant]
     Active Substance: PREDNISONE
  5. ADVAIR DISKU [Concomitant]
  6. LEVOTHYROXIN [Concomitant]
     Active Substance: LEVOTHYROXINE
  7. MONTELUKAST [Concomitant]
     Active Substance: MONTELUKAST SODIUM
  8. SODIUM CHLOR NEB 7% [Concomitant]
  9. SOTALOL HCL [Concomitant]
     Active Substance: SOTALOL
  10. AZITHROMYCIN ANHYDROUS. [Concomitant]
     Active Substance: AZITHROMYCIN ANHYDROUS
  11. CLOPIDOGREL [Concomitant]
     Active Substance: CLOPIDOGREL BISULFATE
  12. SIMVASTATIN. [Concomitant]
     Active Substance: SIMVASTATIN
  13. TOBRAMYCIN 300MG/ML 20ML [Suspect]
     Active Substance: TOBRAMYCIN
     Indication: BRONCHIECTASIS
     Dosage: ?          OTHER ROUTE:INH28DON28DAYSOFF?
     Route: 055
     Dates: start: 20200325
  14. ELIQUIS [Concomitant]
     Active Substance: APIXABAN
  15. FUROSEMIDE. [Concomitant]
     Active Substance: FUROSEMIDE
  16. AMOX/K CLAV [Concomitant]
     Active Substance: AMOXICILLIN\CLAVULANATE POTASSIUM
  17. BENZONATATE. [Concomitant]
     Active Substance: BENZONATATE
  18. NITROFURANTIN [Concomitant]
     Active Substance: NITROFURANTOIN
  19. FELODIPINE. [Concomitant]
     Active Substance: FELODIPINE
  20. FLUTICASONE. [Concomitant]
     Active Substance: FLUTICASONE
  21. RANITIDINE. [Concomitant]
     Active Substance: RANITIDINE
  22. SPIRIVA [Concomitant]
     Active Substance: TIOTROPIUM BROMIDE MONOHYDRATE
  23. CEFDINIR. [Concomitant]
     Active Substance: CEFDINIR

REACTIONS (1)
  - Stent placement [None]

NARRATIVE: CASE EVENT DATE: 20200311
